FAERS Safety Report 4957482-6 (Version None)
Quarter: 2006Q1

REPORT INFORMATION
  Report Type: 
  Country: None (occurrence: None)
  Receive Date: 20060328
  Receipt Date: 20060328
  Transmission Date: 20060701
  Serious: No
  Sender: FDA-Public Use
  Company Number: None

PATIENT
  Age: 69 Year
  Sex: Male
  Weight: 95.2554 kg

DRUGS (1)
  1. CEFAZOLIN SODIUM IN DEXTROSE 5% [Suspect]
     Dosage: 1 GM Q8H IV PIGGYBACK
     Route: 042
     Dates: start: 20060123, end: 20060124

REACTIONS (2)
  - ERYTHEMA [None]
  - PRURITUS [None]
